FAERS Safety Report 17535280 (Version 2)
Quarter: 2020Q2

REPORT INFORMATION
  Report Type: Report from Study
  Country: US (occurrence: US)
  Receive Date: 20200312
  Receipt Date: 20200402
  Transmission Date: 20200713
  Serious: Yes (Hospitalization, Other)
  Sender: FDA-Public Use
  Company Number: US-ACTELION-A-NJ2018-181408

PATIENT
  Sex: Female
  Weight: 65.31 kg

DRUGS (4)
  1. UPTRAVI [Suspect]
     Active Substance: SELEXIPAG
     Dosage: 400 MCG, BID
     Route: 048
  2. UPTRAVI [Suspect]
     Active Substance: SELEXIPAG
     Dosage: 400 MCG, QD
     Route: 048
  3. OPSUMIT [Suspect]
     Active Substance: MACITENTAN
     Indication: PULMONARY ARTERIAL HYPERTENSION
     Dosage: 10 MG, QD
     Route: 048
  4. UPTRAVI [Suspect]
     Active Substance: SELEXIPAG
     Indication: PULMONARY ARTERIAL HYPERTENSION
     Dosage: 600 MCG, BID
     Route: 048
     Dates: start: 20180817

REACTIONS (12)
  - Oxygen saturation decreased [Unknown]
  - Oxygen consumption increased [Unknown]
  - Fluid retention [Unknown]
  - Dyspnoea [Unknown]
  - Migraine with aura [Unknown]
  - Headache [Unknown]
  - Neck pain [Unknown]
  - Heart rate increased [Unknown]
  - Visual impairment [Unknown]
  - Hot flush [Unknown]
  - Pain in jaw [Unknown]
  - Cold sweat [Unknown]
